FAERS Safety Report 18354381 (Version 2)
Quarter: 2020Q4

REPORT INFORMATION
  Report Type: Spontaneous
  Country: US (occurrence: US)
  Receive Date: 20201007
  Receipt Date: 20201014
  Transmission Date: 20210114
  Serious: No
  Sender: FDA-Public Use
  Company Number: US-MYLANLABS-2020M1084334

PATIENT
  Age: 66 Year
  Sex: Female
  Weight: 86 kg

DRUGS (2)
  1. BISOPROLOL FUMARATE TABLETS, USP [Suspect]
     Active Substance: BISOPROLOL FUMARATE
     Indication: PALPITATIONS
  2. BISOPROLOL FUMARATE TABLETS, USP [Suspect]
     Active Substance: BISOPROLOL FUMARATE
     Indication: HYPERTENSION
     Dosage: UNK UNK, QD
     Route: 048

REACTIONS (6)
  - Abdominal distension [Not Recovered/Not Resolved]
  - Decreased appetite [Recovering/Resolving]
  - Wrong technique in product usage process [Not Recovered/Not Resolved]
  - Hypersensitivity [Not Recovered/Not Resolved]
  - Weight decreased [Recovering/Resolving]
  - Oropharyngeal discomfort [Not Recovered/Not Resolved]
